FAERS Safety Report 6256952-0 (Version None)
Quarter: 2009Q3

REPORT INFORMATION
  Report Type: 
  Country: None (occurrence: None)
  Receive Date: 20090706
  Receipt Date: 20090623
  Transmission Date: 20100115
  Serious: Yes (Hospitalization)
  Sender: FDA-Public Use
  Company Number: AN-NOVOPROD-288751

PATIENT
  Age: 70 Year
  Sex: Male
  Weight: 75 kg

DRUGS (4)
  1. NOVOSEVEN [Suspect]
     Dosage: 5 MG, QD
     Route: 042
     Dates: start: 20090606, end: 20090606
  2. CYKLOKAPRON [Concomitant]
     Indication: GASTROINTESTINAL HAEMORRHAGE
     Dosage: 1000 MG, QID
     Route: 042
     Dates: start: 20090606
  3. KONAKION [Concomitant]
     Dosage: 10 MG, QD
     Route: 042
     Dates: start: 20090606
  4. CALCIUM SANDOZ                     /00060701/ [Concomitant]
     Dosage: 4.5 MMOL, QD
     Route: 042
     Dates: start: 20090606

REACTIONS (1)
  - CEREBROVASCULAR ACCIDENT [None]
